FAERS Safety Report 7526037-1 (Version None)
Quarter: 2011Q2

REPORT INFORMATION
  Report Type: 
  Country: None (occurrence: None)
  Receive Date: 20110526
  Receipt Date: 20110511
  Transmission Date: 20111010
  Serious: Yes (Other)
  Sender: FDA-Public Use
  Company Number: 2011AP000970

PATIENT
  Age: 77 Year
  Sex: Female

DRUGS (14)
  1. ACYCLOVIR [Concomitant]
  2. CLOPIDOGREL [Concomitant]
  3. LEVOTHYROXNIE (LEVOTHYROXINE) [Concomitant]
  4. CALCIUM CARBONATE [Concomitant]
  5. LEVOTHYROXINE SODIUM [Concomitant]
  6. POTASSIUM BICARBONATE (POTASSIUM BICARBONATE) [Concomitant]
  7. STRONTIUM RANELATE (STRONTIUM RANELATE) [Concomitant]
  8. INFLUENZA VIRUS (INFLUENZA VIRUS) [Concomitant]
  9. AMLODIPINE BESYLATE [Suspect]
     Indication: PRODUCT USED FOR UNKNOWN INDICATION
     Dates: start: 20110101
  10. PARAFFIN SOFT (PARAFFIN SOFT) [Concomitant]
  11. SODIUM ALGINATE (SODIUM ALGINATE) [Concomitant]
  12. RAMIPRIL [Concomitant]
  13. LEVOTHYROXINE SODIUM [Concomitant]
  14. PROCHLORPERAZINE MALEATE [Concomitant]

REACTIONS (2)
  - SWELLING [None]
  - JOINT SWELLING [None]
